FAERS Safety Report 9425281 (Version 1)
Quarter: 2013Q3

REPORT INFORMATION
  Report Type: Spontaneous
  Country: GB (occurrence: None)
  Receive Date: 20130725
  Receipt Date: 20130725
  Transmission Date: 20140515
  Serious: Yes (Other)
  Sender: FDA-Public Use
  Company Number: AUR-APL-2013-06117

PATIENT
  Age: 57 Year
  Sex: Male

DRUGS (4)
  1. LISINOPRIL [Suspect]
     Indication: HYPERTENSION
     Route: 048
  2. TELAPREVIR [Suspect]
     Route: 048
     Dates: start: 201109
  3. PEGINTERFERON ALFA-2B (PEGINTERFERON ALFA-2B) [Concomitant]
  4. RIBAVIRIN (RIBAVIRIN) [Concomitant]

REACTIONS (4)
  - Anaemia [None]
  - Renal impairment [None]
  - Dehydration [None]
  - Drug interaction [None]
